FAERS Safety Report 9917478 (Version 1)
Quarter: 2014Q1

REPORT INFORMATION
  Report Type: Spontaneous
  Country: US (occurrence: US)
  Receive Date: 20140221
  Receipt Date: 20140221
  Transmission Date: 20141002
  Serious: No
  Sender: FDA-Public Use
  Company Number: US-PFIZER INC-2014047562

PATIENT
  Age: 47 Year
  Sex: Female
  Weight: 81.63 kg

DRUGS (1)
  1. CELEBREX [Suspect]
     Indication: RHEUMATOID ARTHRITIS
     Dosage: UNK, 2X/DAY
     Dates: end: 20140211

REACTIONS (3)
  - VIIth nerve paralysis [Unknown]
  - Neck pain [Unknown]
  - Malaise [Unknown]
